FAERS Safety Report 16207084 (Version 3)
Quarter: 2019Q2

REPORT INFORMATION
  Report Type: Report from Study
  Country: JP (occurrence: JP)
  Receive Date: 20190417
  Receipt Date: 20190425
  Transmission Date: 20190711
  Serious: Yes (Hospitalization)
  Sender: FDA-Public Use
  Company Number: JP-EISAI MEDICAL RESEARCH-EC-2019-054986

PATIENT
  Age: 76 Year
  Sex: Male
  Weight: 43 kg

DRUGS (10)
  1. TAKECAB [Concomitant]
     Active Substance: VONOPRAZAN FUMURATE
  2. LIPACREON [Concomitant]
     Active Substance: PANCRELIPASE
  3. MOHRUS L [Concomitant]
     Active Substance: KETOPROFEN
  4. LENVATINIB [Suspect]
     Active Substance: LENVATINIB
     Indication: RENAL CELL CARCINOMA
     Route: 048
     Dates: start: 20190221, end: 20190304
  5. EVEROLIMUS. [Suspect]
     Active Substance: EVEROLIMUS
     Route: 048
     Dates: start: 20190315
  6. ALLOPURINOL. [Concomitant]
     Active Substance: ALLOPURINOL
  7. EVEROLIMUS. [Suspect]
     Active Substance: EVEROLIMUS
     Indication: RENAL CELL CARCINOMA
     Route: 048
     Dates: start: 20190221, end: 20190304
  8. LOSARTAN K [Concomitant]
     Active Substance: LOSARTAN POTASSIUM
  9. LENVATINIB [Suspect]
     Active Substance: LENVATINIB
     Route: 048
     Dates: start: 20190315
  10. URIEF OD [Concomitant]

REACTIONS (2)
  - Diarrhoea [Recovered/Resolved]
  - Vomiting [Recovered/Resolved]

NARRATIVE: CASE EVENT DATE: 20190411
